FAERS Safety Report 8906236 (Version 1)
Quarter: 2012Q4

REPORT INFORMATION
  Report Type: Spontaneous
  Country: US (occurrence: None)
  Receive Date: 20121112
  Receipt Date: 20121112
  Transmission Date: 20130627
  Serious: No
  Sender: FDA-Public Use
  Company Number: None

PATIENT
  Age: 82 Year
  Sex: Female
  Weight: 61.24 kg

DRUGS (2)
  1. ATORVASTATIN [Suspect]
     Indication: HYPERLIPIDEMIA
     Route: 048
     Dates: start: 20110909, end: 20111014
  2. ATORVASTATIN [Suspect]
     Indication: DIABETES MELLITUS
     Route: 048
     Dates: start: 20110909, end: 20111014

REACTIONS (4)
  - Alanine aminotransferase increased [None]
  - Aspartate aminotransferase increased [None]
  - Blood alkaline phosphatase increased [None]
  - Product substitution issue [None]
